FAERS Safety Report 7119784-7 (Version None)
Quarter: 2010Q4

REPORT INFORMATION
  Report Type: 
  Country: None (occurrence: None)
  Receive Date: 20101123
  Receipt Date: 20100818
  Transmission Date: 20110411
  Serious: No
  Sender: FDA-Public Use
  Company Number: US-BRISTOL-MYERS SQUIBB COMPANY-15247141

PATIENT
  Age: 75 Year
  Sex: Male

DRUGS (4)
  1. ONGLYZA [Suspect]
     Dosage: DURATION:2-3WEEKS
  2. METFORMIN HCL [Suspect]
  3. MICARDIS HCT [Suspect]
  4. GLYBURIDE [Suspect]

REACTIONS (1)
  - GOUT [None]
